FAERS Safety Report 7177151-4 (Version None)
Quarter: 2010Q4

REPORT INFORMATION
  Report Type: 
  Country: None (occurrence: None)
  Receive Date: 20101220
  Receipt Date: 20101210
  Transmission Date: 20110411
  Serious: Yes (Other)
  Sender: FDA-Public Use
  Company Number: CA-JNJCH-2010028512

PATIENT
  Sex: Female

DRUGS (2)
  1. ROLAIDS SOFTCHEWS [Suspect]
     Indication: ABDOMINAL DISCOMFORT
     Dosage: TEXT:UNKNOWN
     Route: 048
  2. ANALGESICS [Concomitant]
     Indication: PAIN
     Dosage: TEXT:UNKNOWN
     Route: 065

REACTIONS (2)
  - HAEMATOCHEZIA [None]
  - PRODUCT QUALITY ISSUE [None]
